FAERS Safety Report 14520167 (Version 3)
Quarter: 2018Q3

REPORT INFORMATION
  Report Type: Report from Study
  Country: AU (occurrence: AU)
  Receive Date: 20180212
  Receipt Date: 20180716
  Transmission Date: 20181010
  Serious: Yes (Death)
  Sender: FDA-Public Use
  Company Number: AU-PFIZER INC-2018059731

PATIENT

DRUGS (8)
  1. MEROPENEM. [Suspect]
     Active Substance: MEROPENEM
     Dosage: UNK (25 DAYS OF IV MEROPENEM)
     Route: 042
  2. TRIMETHOPRIM SULFAMETHOXAZOLE [Concomitant]
     Active Substance: SULFAMETHOXAZOLE\TRIMETHOPRIM
     Dosage: UNK (19 DAYS OF CONCURRENT TMP/SMX)
  3. MEROPENEM. [Suspect]
     Active Substance: MEROPENEM
     Dosage: UNK (IV MEROPENEM FOR SEVEN DAYS)
     Route: 042
  4. CEFTAZIDIME. [Concomitant]
     Active Substance: CEFTAZIDIME
     Dosage: UNK (IV CEFTAZIDIME FOR 15 DAYS)
     Route: 042
  5. TRIMETHOPRIM SULFAMETHOXAZOLE [Concomitant]
     Active Substance: SULFAMETHOXAZOLE\TRIMETHOPRIM
     Indication: BURKHOLDERIA PSEUDOMALLEI INFECTION
     Dosage: UNK (ORAL TMP/SMX FOR 29 DAYS)
     Route: 048
  6. MEROPENEM. [Suspect]
     Active Substance: MEROPENEM
     Indication: BURKHOLDERIA PSEUDOMALLEI INFECTION
     Dosage: UNK (IV MEROPENEM FOR 25 DAYS)
     Route: 042
  7. TRIMETHOPRIM SULFAMETHOXAZOLE [Concomitant]
     Active Substance: SULFAMETHOXAZOLE\TRIMETHOPRIM
     Dosage: UNK (15 DAYS OF ORAL TMP/SMX)
     Route: 048
  8. CEFTAZIDIME. [Concomitant]
     Active Substance: CEFTAZIDIME
     Indication: BURKHOLDERIA PSEUDOMALLEI INFECTION
     Dosage: UNK (IV CEFTAZIDIME FOR 14 DAYS)
     Route: 042

REACTIONS (1)
  - Drug ineffective [Fatal]
